FAERS Safety Report 18533383 (Version 1)
Quarter: 2020Q4

REPORT INFORMATION
  Report Type: Spontaneous
  Country: US (occurrence: US)
  Receive Date: 20201120
  Receipt Date: 20201120
  Transmission Date: 20210114
  Serious: Yes (Hospitalization)
  Sender: FDA-Public Use
  Company Number: None

PATIENT
  Age: 61 Year
  Sex: Female
  Weight: 83.7 kg

DRUGS (6)
  1. AMLODIPINE [Concomitant]
     Active Substance: AMLODIPINE BESYLATE
  2. BRAFTOVI [Suspect]
     Active Substance: ENCORAFENIB
     Indication: MALIGNANT MELANOMA
     Route: 048
     Dates: start: 20200706, end: 20201120
  3. DOCUSATE [Concomitant]
     Active Substance: DOCUSATE
  4. ONDANSETRON [Concomitant]
     Active Substance: ONDANSETRON
  5. MEKTOVI [Suspect]
     Active Substance: BINIMETINIB
     Indication: MALIGNANT MELANOMA
     Route: 048
     Dates: start: 20200706, end: 20201120
  6. ESOMEPRAZOLE. [Concomitant]
     Active Substance: ESOMEPRAZOLE MAGNESIUM

REACTIONS (5)
  - Hypoaesthesia [None]
  - Pyrexia [None]
  - Rash [None]
  - Paraesthesia [None]
  - Dysstasia [None]

NARRATIVE: CASE EVENT DATE: 20201101
